FAERS Safety Report 4597033-1 (Version None)
Quarter: 2005Q1

REPORT INFORMATION
  Report Type: 
  Country: None (occurrence: None)
  Receive Date: 20050301
  Receipt Date: 20050228
  Transmission Date: 20050727
  Serious: Yes (Other)
  Sender: FDA-Public Use
  Company Number: 004256

PATIENT
  Sex: Female

DRUGS (1)
  1. CLARAVIS [Suspect]
     Dates: start: 20040831, end: 20040925

REACTIONS (3)
  - ANGIOMYOLIPOMA [None]
  - NEOPLASM PROGRESSION [None]
  - TUMOUR HAEMORRHAGE [None]
